FAERS Safety Report 8793130 (Version 2)
Quarter: 2015Q1

REPORT INFORMATION
  Report Type: Report from Study
  Country: US (occurrence: US)
  Receive Date: 20120918
  Receipt Date: 20150319
  Transmission Date: 20150721
  Serious: Yes (Death)
  Sender: FDA-Public Use
  Company Number: US-ROCHE-1122962

PATIENT
  Sex: Male
  Weight: 98.43 kg

DRUGS (25)
  1. PEPCID [Concomitant]
     Active Substance: FAMOTIDINE
     Dosage: 1 TABLET BY MOUTH
     Route: 048
  2. NIFEDIPINE. [Concomitant]
     Active Substance: NIFEDIPINE
     Dosage: SUSTAINED RELEASE, 1 TABLET BY MOUTH
     Route: 048
  3. THERMAZENE [Concomitant]
     Active Substance: SILVER SULFADIAZINE
     Dosage: 1% CREAM, APPLY AS DIRECTED
     Route: 061
  4. ACETAMINOPHEN. [Concomitant]
     Active Substance: ACETAMINOPHEN
     Dosage: 2 TABLETS AS NEEDED
     Route: 065
  5. COUMADIN [Concomitant]
     Active Substance: WARFARIN SODIUM
     Route: 048
  6. ZOFRAN [Concomitant]
     Active Substance: ONDANSETRON HYDROCHLORIDE
     Dosage: PRN
     Route: 048
  7. DILANTIN [Concomitant]
     Active Substance: PHENYTOIN
     Dosage: NIGHTLY
     Route: 048
  8. FAMOTIDINE. [Concomitant]
     Active Substance: FAMOTIDINE
     Route: 048
  9. AVASTIN [Suspect]
     Active Substance: BEVACIZUMAB
     Route: 042
     Dates: start: 20071126
  10. DEXAMETHASONE. [Concomitant]
     Active Substance: DEXAMETHASONE
     Dosage: 4 MG AM, 2 MG PM BY MONTH
     Route: 048
  11. DILANTIN [Concomitant]
     Active Substance: PHENYTOIN
     Dosage: 4 PILLS ON EVEN NUMBERED DAYS, EXTENDED
     Route: 048
  12. COUMADIN [Concomitant]
     Active Substance: WARFARIN SODIUM
     Dosage: AS DIRECTED
     Route: 048
  13. AVASTIN [Suspect]
     Active Substance: BEVACIZUMAB
     Route: 042
     Dates: start: 20071112
  14. TYLENOL [Concomitant]
     Active Substance: ACETAMINOPHEN
     Dosage: 2 TABLET PRN
     Route: 048
  15. DILANTIN [Concomitant]
     Active Substance: PHENYTOIN
     Dosage: 5 PILLS ON EVERY ODD NUMBER DAYS
     Route: 048
  16. DIOVAN [Concomitant]
     Active Substance: VALSARTAN
     Route: 048
  17. AVASTIN [Suspect]
     Active Substance: BEVACIZUMAB
     Indication: BRAIN NEOPLASM MALIGNANT
     Route: 042
     Dates: start: 20070928
  18. AVASTIN [Suspect]
     Active Substance: BEVACIZUMAB
     Route: 042
     Dates: start: 20071012
  19. UROXATRAL [Concomitant]
     Active Substance: ALFUZOSIN HYDROCHLORIDE
     Dosage: SUSTAINED RELEASE 24 HR, 1 TABLET BY MOUTH
     Route: 048
  20. LASIX [Concomitant]
     Active Substance: FUROSEMIDE
     Dosage: 1 TABLET BY MOUTH DAILY IN THE MORNING
     Route: 048
  21. KEPPRA [Concomitant]
     Active Substance: LEVETIRACETAM
     Dosage: 1 TABLET
     Route: 048
  22. MILK OF MAGNESIA [Concomitant]
     Active Substance: MAGNESIUM HYDROXIDE
     Dosage: PRN
     Route: 048
  23. AMBIEN [Concomitant]
     Active Substance: ZOLPIDEM TARTRATE
     Dosage: 1-2 TABLET AT BEDTIME PRN
     Route: 048
  24. AVASTIN [Suspect]
     Active Substance: BEVACIZUMAB
     Route: 042
     Dates: start: 20071029
  25. COUMADIN [Concomitant]
     Active Substance: WARFARIN SODIUM
     Route: 048

REACTIONS (7)
  - Hemiparesis [Unknown]
  - Off label use [Unknown]
  - Death [Fatal]
  - Oedema peripheral [Unknown]
  - Proteinuria [Unknown]
  - Blood pressure increased [Unknown]
  - Hemiapraxia [Unknown]
